FAERS Safety Report 9538956 (Version 1)
Quarter: 2013Q3

REPORT INFORMATION
  Report Type: Spontaneous
  Country: IT (occurrence: IT)
  Receive Date: 20130920
  Receipt Date: 20130920
  Transmission Date: 20140515
  Serious: Yes (Death, Other)
  Sender: FDA-Public Use
  Company Number: IT-ASTELLAS-2013EU007996

PATIENT
  Age: 22 Year
  Sex: Male

DRUGS (1)
  1. TACROLIMUS SYSTEMIC [Suspect]
     Indication: LIVER TRANSPLANT
     Dosage: UNK
     Route: 065

REACTIONS (16)
  - Pneumonia [Fatal]
  - Respiratory failure [Fatal]
  - Oropharyngitis fungal [Unknown]
  - Cytomegalovirus infection [Unknown]
  - Liver transplant rejection [Unknown]
  - Biliary tract infection [Unknown]
  - Biliary tract infection bacterial [Unknown]
  - Pseudomonas infection [Unknown]
  - Urinary tract infection enterococcal [Unknown]
  - Urinary tract infection pseudomonal [Unknown]
  - B-cell lymphoma [Unknown]
  - Cholangitis [Unknown]
  - Pneumonia [Unknown]
  - Bronchiectasis [Unknown]
  - Multiple-drug resistance [Unknown]
  - Pseudomonas infection [Unknown]
